FAERS Safety Report 17484237 (Version 1)
Quarter: 2020Q1

REPORT INFORMATION
  Report Type: Spontaneous
  Country: NO (occurrence: NO)
  Receive Date: 20200302
  Receipt Date: 20200302
  Transmission Date: 20200409
  Serious: No
  Sender: FDA-Public Use
  Company Number: NO-EMD SERONO-E2B_90075221

PATIENT
  Age: 42 Year
  Sex: Male

DRUGS (1)
  1. MAVENCLAD [Suspect]
     Active Substance: CLADRIBINE
     Indication: MULTIPLE SCLEROSIS
     Route: 048
     Dates: start: 20191017, end: 20191021

REACTIONS (3)
  - Muscle rigidity [Recovering/Resolving]
  - Diarrhoea [Recovering/Resolving]
  - Hypoaesthesia [Recovering/Resolving]

NARRATIVE: CASE EVENT DATE: 20191021
